FAERS Safety Report 9199214 (Version 1)
Quarter: 2013Q1

REPORT INFORMATION
  Report Type: Spontaneous
  Country: US (occurrence: US)
  Receive Date: 20130329
  Receipt Date: 20130329
  Transmission Date: 20140127
  Serious: No
  Sender: FDA-Public Use
  Company Number: US-PFIZER INC-2013101690

PATIENT
  Age: 72 Year
  Sex: Female
  Weight: 68.03 kg

DRUGS (1)
  1. PRISTIQ [Suspect]
     Indication: DEPRESSION
     Dosage: 50 MG, 1X/DAY
     Route: 048
     Dates: start: 2009

REACTIONS (6)
  - Anxiety [Unknown]
  - Drug ineffective [Unknown]
  - Crying [Unknown]
  - Emotional disorder [Unknown]
  - Malaise [Unknown]
  - Abdominal discomfort [Unknown]
